FAERS Safety Report 4309256-7 (Version None)
Quarter: 2004Q1

REPORT INFORMATION
  Report Type: 
  Country: None (occurrence: None)
  Receive Date: 20040227
  Receipt Date: 20040218
  Transmission Date: 20041129
  Serious: Yes (Hospitalization)
  Sender: FDA-Public Use
  Company Number: HQWYE126518FEB04

PATIENT
  Age: 20 Year
  Sex: Female

DRUGS (1)
  1. EFFEXOR XR [Suspect]
     Indication: ANXIETY DISORDER
     Dosage: 75 MG 1 X PER 1 DAY
     Route: 048
     Dates: start: 20040101, end: 20040201

REACTIONS (3)
  - COUGH [None]
  - PULMONARY OEDEMA [None]
  - RASH [None]
